FAERS Safety Report 5889186-X (Version None)
Quarter: 2008Q3

REPORT INFORMATION
  Report Type: 
  Country: None (occurrence: None)
  Receive Date: 20080919
  Receipt Date: 20080909
  Transmission Date: 20090109
  Serious: Yes (Hospitalization)
  Sender: FDA-Public Use
  Company Number: PHHO2008AU06015

PATIENT
  Sex: Female
  Weight: 77.8 kg

DRUGS (2)
  1. ERL 080A ERL+TAB [Suspect]
     Indication: RENAL TRANSPLANT
     Dosage: 720 MG, BID
     Route: 048
     Dates: start: 20080104, end: 20080427
  2. ERL 080A ERL+TAB [Suspect]
     Dosage: 360 MG, BID
     Route: 048
     Dates: start: 20080428

REACTIONS (5)
  - DYSPNOEA [None]
  - LYMPHOPENIA [None]
  - MYALGIA [None]
  - PYREXIA [None]
  - VIRAL INFECTION [None]
